FAERS Safety Report 23083543 (Version 1)
Quarter: 2023Q4

REPORT INFORMATION
  Report Type: Spontaneous
  Country: US (occurrence: US)
  Receive Date: 20231019
  Receipt Date: 20231019
  Transmission Date: 20240109
  Serious: No
  Sender: FDA-Public Use
  Company Number: US-ADVANZ PHARMA-202310009050

PATIENT

DRUGS (4)
  1. HYDROXYCHLOROQUINE [Suspect]
     Active Substance: HYDROXYCHLOROQUINE
     Indication: Rheumatoid arthritis
     Dosage: 200 MG, BID, MPID: 54165
     Route: 048
     Dates: start: 20230726, end: 2023
  2. RINVOQ [Suspect]
     Active Substance: UPADACITINIB
     Indication: Rheumatoid arthritis
     Dosage: UNK (HELD FOR 2 WEEKS)
     Route: 048
     Dates: start: 202302, end: 202304
  3. RINVOQ [Suspect]
     Active Substance: UPADACITINIB
     Dosage: UNK (RESTARTED)
     Route: 048
     Dates: start: 2023
  4. PREGABALIN [Concomitant]
     Active Substance: PREGABALIN
     Indication: Product used for unknown indication
     Dosage: 300 MG, QD, (EVERY NIGHT AT BEDTIME)

REACTIONS (1)
  - Myalgia [Recovered/Resolved]

NARRATIVE: CASE EVENT DATE: 20230403
